FAERS Safety Report 7277390-8 (Version None)
Quarter: 2011Q1

REPORT INFORMATION
  Report Type: 
  Country: None (occurrence: None)
  Receive Date: 20110207
  Receipt Date: 20110131
  Transmission Date: 20110831
  Serious: Yes (Other)
  Sender: FDA-Public Use
  Company Number: AR-US-EMD SERONO, INC.-7039295

PATIENT
  Sex: Male

DRUGS (1)
  1. REBIF [Suspect]
     Indication: MULTIPLE SCLEROSIS
     Dates: start: 20060510

REACTIONS (3)
  - MULTIPLE SCLEROSIS RELAPSE [None]
  - BIPOLAR DISORDER [None]
  - INFLUENZA LIKE ILLNESS [None]
